FAERS Safety Report 9701498 (Version 1)
Quarter: 2013Q4

REPORT INFORMATION
  Report Type: Spontaneous
  Country: US (occurrence: US)
  Receive Date: 20131121
  Receipt Date: 20131121
  Transmission Date: 20140711
  Serious: No
  Sender: FDA-Public Use
  Company Number: US-009507513-1311USA008966

PATIENT
  Age: 34 Year
  Sex: Female
  Weight: 64.4 kg

DRUGS (2)
  1. NUVARING [Suspect]
     Indication: CONTRACEPTION
     Dosage: UNK
     Dates: end: 2013
  2. NUVARING [Suspect]
     Dosage: UNK
     Dates: start: 20131103

REACTIONS (2)
  - Vaginal odour [Unknown]
  - Metrorrhagia [Unknown]
